FAERS Safety Report 18086112 (Version 2)
Quarter: 2021Q3

REPORT INFORMATION
  Report Type: Spontaneous
  Country: US (occurrence: US)
  Receive Date: 20200728
  Receipt Date: 20210729
  Transmission Date: 20211014
  Serious: No
  Sender: FDA-Public Use
  Company Number: US-PERRIGO-20US008451

PATIENT
  Age: 41 Year
  Sex: Male
  Weight: 62.59 kg

DRUGS (1)
  1. MINOXIDIL. [Suspect]
     Active Substance: MINOXIDIL
     Indication: ALOPECIA
     Dosage: 1 ML, BID
     Route: 061
     Dates: start: 20200602, end: 20200605

REACTIONS (6)
  - Pruritus [Recovering/Resolving]
  - Application site exfoliation [Recovering/Resolving]
  - Application site pruritus [Recovering/Resolving]
  - Eye swelling [Recovering/Resolving]
  - Ear swelling [Recovering/Resolving]
  - Application site swelling [Recovering/Resolving]

NARRATIVE: CASE EVENT DATE: 20200603
